FAERS Safety Report 7032332-5 (Version None)
Quarter: 2010Q4

REPORT INFORMATION
  Report Type: 
  Country: None (occurrence: None)
  Receive Date: 20101005
  Receipt Date: 20100920
  Transmission Date: 20110411
  Serious: Yes (Hospitalization)
  Sender: FDA-Public Use
  Company Number: GB-ACCORD-004336

PATIENT
  Age: 79 Year
  Sex: Male

DRUGS (1)
  1. MITOMYCIN [Suspect]
     Indication: BLADDER CANCER
     Dosage: 40.00-MG - / INTRAVESICAL
     Route: 043

REACTIONS (11)
  - ABSCESS [None]
  - BLADDER NECROSIS [None]
  - BLADDER PERFORATION [None]
  - BLADDER TRANSITIONAL CELL CARCINOMA RECURRENT [None]
  - CHRONIC OBSTRUCTIVE PULMONARY DISEASE [None]
  - DECREASED APPETITE [None]
  - DRUG TOXICITY [None]
  - LEUKOCYTOSIS [None]
  - PROCEDURAL COMPLICATION [None]
  - PYREXIA [None]
  - STAPHYLOCOCCUS TEST POSITIVE [None]
